FAERS Safety Report 5088513-3 (Version None)
Quarter: 2006Q3

REPORT INFORMATION
  Report Type: 
  Country: None (occurrence: None)
  Receive Date: 20060822
  Receipt Date: 20060808
  Transmission Date: 20061208
  Serious: Yes (Other)
  Sender: FDA-Public Use
  Company Number: 2006AL002223

PATIENT
  Age: 73 Year
  Sex: Female

DRUGS (6)
  1. IBUPROFEN [Suspect]
     Indication: PAIN
     Dosage: 400 MG, TID, PO
     Route: 048
     Dates: start: 20060508, end: 20060522
  2. OMEPRAZOLE [Concomitant]
  3. CITALOPRAM HYDROBROMIDE [Concomitant]
  4. FRAGMIN [Concomitant]
  5. PARACETAMOL [Concomitant]
  6. PROCHLORPERAZINE TAB [Concomitant]

REACTIONS (2)
  - ALANINE AMINOTRANSFERASE INCREASED [None]
  - GAMMA-GLUTAMYLTRANSFERASE INCREASED [None]
